FAERS Safety Report 5663884-5 (Version None)
Quarter: 2008Q1

REPORT INFORMATION
  Report Type: 
  Country: None (occurrence: None)
  Receive Date: 20080311
  Receipt Date: 20080227
  Transmission Date: 20080703
  Serious: Yes (Hospitalization, Other)
  Sender: FDA-Public Use
  Company Number: PHFR2008GB00913

PATIENT
  Sex: Male

DRUGS (2)
  1. NEORAL [Suspect]
     Indication: RENAL TRANSPLANT
     Dates: start: 19960101
  2. CICLOSPORIN SANDOZ (NGX)(CICLOSPORIN) ORAL SOLUTION [Suspect]
     Indication: RENAL TRANSPLANT
     Dates: start: 19930101

REACTIONS (10)
  - ATRIAL FIBRILLATION [None]
  - DIALYSIS [None]
  - DRUG INEFFECTIVE [None]
  - KIDNEY TRANSPLANT REJECTION [None]
  - MYOCARDIAL INFARCTION [None]
  - PHARMACEUTICAL PRODUCT COMPLAINT [None]
  - RENAL IMPAIRMENT [None]
  - RENAL TRANSPLANT [None]
  - ROAD TRAFFIC ACCIDENT [None]
  - TRANSIENT ISCHAEMIC ATTACK [None]
